FAERS Safety Report 4735122-9 (Version None)
Quarter: 2005Q3

REPORT INFORMATION
  Report Type: 
  Country: None (occurrence: None)
  Receive Date: 20050804
  Receipt Date: 20050715
  Transmission Date: 20060218
  Serious: Yes (Other)
  Sender: FDA-Public Use
  Company Number: USA0507102972

PATIENT
  Age: 10 Year
  Sex: Male

DRUGS (2)
  1. STRATTERA [Suspect]
     Indication: ASPERGER'S DISORDER
     Dates: start: 20020117, end: 20020701
  2. AMITRIPTYLINE HCL [Concomitant]

REACTIONS (1)
  - GRAND MAL CONVULSION [None]
